FAERS Safety Report 7303961-6 (Version None)
Quarter: 2011Q1

REPORT INFORMATION
  Report Type: 
  Country: None (occurrence: None)
  Receive Date: 20110221
  Receipt Date: 20110215
  Transmission Date: 20110831
  Serious: Yes (Hospitalization)
  Sender: FDA-Public Use
  Company Number: TR-ABBOTT-11P-161-0705154-00

PATIENT
  Age: 68 Year
  Sex: Male
  Weight: 85 kg

DRUGS (5)
  1. TARKA [Suspect]
     Indication: HYPERTENSION
     Dosage: 180/2 MG DAILY
     Route: 048
     Dates: start: 20110212, end: 20110213
  2. DISPRIL [Concomitant]
     Indication: HYPERTENSION
     Route: 048
  3. NOOTROPIL [Concomitant]
     Indication: HYPERTENSION
     Route: 048
  4. LIPITOR [Concomitant]
     Indication: HYPERLIPIDAEMIA
     Route: 048
  5. ISORDIL [Concomitant]
     Indication: HYPERTENSION
     Route: 048

REACTIONS (4)
  - LIP SWELLING [None]
  - ANAPHYLACTIC SHOCK [None]
  - URTICARIA [None]
  - DRY MOUTH [None]
